FAERS Safety Report 8595330-6 (Version None)
Quarter: 2012Q3

REPORT INFORMATION
  Report Type: 
  Country: None (occurrence: None)
  Receive Date: 20120815
  Receipt Date: 20120810
  Transmission Date: 20120928
  Serious: Yes (Hospitalization, Other)
  Sender: FDA-Public Use
  Company Number: PHEH2012US012993

PATIENT
  Sex: Female
  Weight: 134 kg

DRUGS (6)
  1. FERROUS SULFATE TAB [Concomitant]
  2. GLEEVEC [Suspect]
     Indication: CHRONIC MYELOID LEUKAEMIA
     Dosage: 400 MG, QD
     Route: 048
     Dates: start: 20090827
  3. TRICOR [Concomitant]
  4. VALIUM [Concomitant]
  5. MULTI-VITAMINS [Concomitant]
  6. FIORINAL [Concomitant]

REACTIONS (6)
  - URINARY TRACT INFECTION [None]
  - ACUTE MYOCARDIAL INFARCTION [None]
  - PYREXIA [None]
  - PYELONEPHRITIS [None]
  - SEPSIS [None]
  - ESCHERICHIA BACTERAEMIA [None]
